FAERS Safety Report 21704306 (Version 1)
Quarter: 2022Q4

REPORT INFORMATION
  Report Type: Report from Study
  Country: EG (occurrence: None)
  Receive Date: 20221209
  Receipt Date: 20221209
  Transmission Date: 20230113
  Serious: Yes (Other)
  Sender: FDA-Public Use
  Company Number: EG-Merck Healthcare KGaA-9370029

PATIENT
  Age: 39 Year
  Sex: Female

DRUGS (1)
  1. REBIF [Suspect]
     Active Substance: INTERFERON BETA-1A
     Indication: Multiple sclerosis
     Route: 058
     Dates: start: 20200124

REACTIONS (5)
  - Lymphoma [Recovered/Resolved]
  - Injection site abscess [Recovered/Resolved]
  - Injection site haematoma [Recovered/Resolved]
  - Injection site swelling [Recovered/Resolved]
  - Injection site inflammation [Unknown]
